FAERS Safety Report 10612989 (Version 5)
Quarter: 2016Q3

REPORT INFORMATION
  Report Type: Report from Study
  Country: DE (occurrence: DE)
  Receive Date: 20141127
  Receipt Date: 20160713
  Transmission Date: 20161109
  Serious: Yes (Hospitalization, Other)
  Sender: FDA-Public Use
  Company Number: PHHY2014DE139651

PATIENT
  Sex: Female
  Weight: 62 kg

DRUGS (10)
  1. AFINITOR [Suspect]
     Active Substance: EVEROLIMUS
     Indication: BREAST CANCER METASTATIC
     Dosage: 5 MG, QD
     Route: 048
     Dates: start: 20140620, end: 20141020
  2. EXEMESTANE. [Concomitant]
     Active Substance: EXEMESTANE
     Indication: BREAST CANCER METASTATIC
     Dosage: 25 MG, QD
     Route: 048
     Dates: start: 20140620, end: 20141020
  3. ENOXAPARIN [Concomitant]
     Active Substance: ENOXAPARIN
     Indication: PRODUCT USED FOR UNKNOWN INDICATION
     Dosage: 1 DF, BID
     Route: 065
     Dates: start: 20141020
  4. PAMIDRONATE [Concomitant]
     Active Substance: PAMIDRONATE DISODIUM
     Indication: METASTASES TO BONE
     Dosage: 90 MG, MONTHLY
     Route: 042
     Dates: start: 20130213, end: 20150128
  5. NITRENDIPIN [Concomitant]
     Active Substance: NITRENDIPINE
     Indication: PRODUCT USED FOR UNKNOWN INDICATION
     Dosage: 1 DF, QD
     Route: 065
     Dates: start: 20141020
  6. NOVAMIN [Concomitant]
     Active Substance: PROCHLORPERAZINE MALEATE
     Indication: METASTASES TO BONE
     Dosage: 30 OT, QID
     Route: 065
     Dates: start: 20141020, end: 20150212
  7. TAVOR//LORAZEPAM [Concomitant]
     Active Substance: LORAZEPAM
     Indication: INSOMNIA
     Dosage: 1 DF, QD
     Route: 065
     Dates: start: 20141020, end: 20150212
  8. PANTOPRAZOLE [Concomitant]
     Active Substance: PANTOPRAZOLE SODIUM
     Indication: PROPHYLAXIS
     Dosage: 1 DF, BID
     Route: 065
     Dates: start: 20141020, end: 20150212
  9. RAMIPRIL. [Concomitant]
     Active Substance: RAMIPRIL
     Indication: PRODUCT USED FOR UNKNOWN INDICATION
     Dosage: 1 DF, QD
     Route: 065
     Dates: start: 20141020
  10. MACROGOL [Concomitant]
     Active Substance: POLYETHYLENE GLYCOLS
     Indication: CONSTIPATION
     Dosage: 1 DF, QD
     Route: 065
     Dates: start: 20141020, end: 20150212

REACTIONS (22)
  - Serum ferritin increased [Unknown]
  - Acute prerenal failure [Recovered/Resolved]
  - Ureteric stenosis [Recovered/Resolved]
  - Faeces discoloured [Recovered/Resolved]
  - C-reactive protein increased [Recovering/Resolving]
  - Prothrombin time shortened [Recovered/Resolved]
  - Pulmonary congestion [Unknown]
  - Diverticulum [Unknown]
  - Abdominal discomfort [Unknown]
  - Anaemia [Recovered/Resolved]
  - Generalised oedema [Recovered/Resolved]
  - Blood creatinine increased [Unknown]
  - Dyspnoea [Recovering/Resolving]
  - Kidney congestion [Recovered/Resolved]
  - Bronchiectasis [Unknown]
  - Aortic arteriosclerosis [Unknown]
  - Radiation pneumonitis [Recovered/Resolved]
  - Lung infiltration [Unknown]
  - Urinary tract infection enterococcal [Unknown]
  - General physical health deterioration [Recovered/Resolved]
  - Gallbladder polyp [Not Recovered/Not Resolved]
  - Lymphadenopathy [Unknown]

NARRATIVE: CASE EVENT DATE: 201410
